FAERS Safety Report 7809616-3 (Version None)
Quarter: 2011Q4

REPORT INFORMATION
  Report Type: 
  Country: None (occurrence: None)
  Receive Date: 20111012
  Receipt Date: 20111004
  Transmission Date: 20120403
  Serious: Yes (Hospitalization)
  Sender: FDA-Public Use
  Company Number: US-ACTELION-A-US2011-55015

PATIENT

DRUGS (3)
  1. EPOPROSTENOL SODIUM [Suspect]
     Indication: PULMONARY ARTERIAL HYPERTENSION
     Dosage: 18 NG/KG, PER MIN
     Route: 042
     Dates: start: 20110421
  2. SILDENAFIL CITRATE [Concomitant]
  3. COUMADIN [Concomitant]

REACTIONS (4)
  - TRANSFUSION [None]
  - BACK PAIN [None]
  - DEVICE RELATED INFECTION [None]
  - WHITE BLOOD CELL COUNT INCREASED [None]
